FAERS Safety Report 18479655 (Version 2)
Quarter: 2022Q3

REPORT INFORMATION
  Report Type: Spontaneous
  Country: GB (occurrence: GB)
  Receive Date: 20201109
  Receipt Date: 20220708
  Transmission Date: 20221027
  Serious: Yes (Hospitalization)
  Sender: FDA-Public Use
  Company Number: GB-GLAXOSMITHKLINE-GB2020219147

PATIENT

DRUGS (2)
  1. VOLTAROL [Suspect]
     Active Substance: DICLOFENAC SODIUM
     Indication: Restless legs syndrome
     Dosage: UNK, 100 G
  2. APIXABAN [Suspect]
     Active Substance: APIXABAN
     Indication: Product used for unknown indication
     Dosage: UNK

REACTIONS (9)
  - Hospitalisation [Unknown]
  - Dizziness [Unknown]
  - Ill-defined disorder [Unknown]
  - Thinking abnormal [Unknown]
  - Disturbance in attention [Unknown]
  - Device use issue [Unknown]
  - Product use in unapproved indication [Unknown]
  - Product use issue [Unknown]
  - Extra dose administered [Unknown]
